FAERS Safety Report 13617564 (Version 1)
Quarter: 2017Q2

REPORT INFORMATION
  Report Type: Spontaneous
  Country: US (occurrence: US)
  Receive Date: 20170606
  Receipt Date: 20170606
  Transmission Date: 20170830
  Serious: No
  Sender: FDA-Public Use
  Company Number: US-SA-2017SA040357

PATIENT
  Age: 73 Year
  Sex: Male

DRUGS (5)
  1. LEVEMIR [Concomitant]
     Active Substance: INSULIN DETEMIR
     Indication: TYPE 2 DIABETES MELLITUS
     Dosage: DOSE:4 UNIT(S)
  2. LANTUS [Suspect]
     Active Substance: INSULIN GLARGINE
     Indication: TYPE 2 DIABETES MELLITUS
     Route: 065
  3. TOUJEO [Concomitant]
     Active Substance: INSULIN GLARGINE
  4. PRANDIN [Concomitant]
     Active Substance: REPAGLINIDE
  5. NOVOLOG [Concomitant]
     Active Substance: INSULIN ASPART
     Dosage: 2-3 UNITS PER MEAL DEPENDING ON WHAT SHE ATE

REACTIONS (1)
  - Blood glucose increased [Unknown]
